FAERS Safety Report 10203020 (Version 2)
Quarter: 2014Q3

REPORT INFORMATION
  Report Type: Spontaneous
  Country: US (occurrence: US)
  Receive Date: 20140528
  Receipt Date: 20140722
  Transmission Date: 20150326
  Serious: Yes (Other)
  Sender: FDA-Public Use
  Company Number: US-TEVA-483846USA

PATIENT
  Sex: Male

DRUGS (1)
  1. BICALUTAMIDE. [Suspect]
     Active Substance: BICALUTAMIDE
     Indication: PROSTATE CANCER
     Dates: start: 20140123, end: 20140206

REACTIONS (9)
  - Asthenia [Unknown]
  - Physical examination abnormal [Unknown]
  - Muscular weakness [Unknown]
  - Quality of life decreased [Unknown]
  - Walking aid user [Unknown]
  - Dysstasia [Not Recovered/Not Resolved]
  - Gait disturbance [Not Recovered/Not Resolved]
  - Pain in extremity [Unknown]
  - Wheelchair user [Unknown]

NARRATIVE: CASE EVENT DATE: 20140205
